FAERS Safety Report 7556865-8 (Version None)
Quarter: 2011Q2

REPORT INFORMATION
  Report Type: 
  Country: None (occurrence: None)
  Receive Date: 20110620
  Receipt Date: 20110616
  Transmission Date: 20111010
  Serious: Yes (Disabling)
  Sender: FDA-Public Use
  Company Number: JP-SANOFI-AVENTIS-2011SA038199

PATIENT
  Sex: Female

DRUGS (2)
  1. ENOXAPARIN SODIUM [Suspect]
     Route: 058
     Dates: start: 20110606, end: 20110609
  2. ENOXAPARIN SODIUM [Suspect]
     Indication: CAESAREAN SECTION
     Route: 058
     Dates: start: 20110606, end: 20110609

REACTIONS (3)
  - PARALYSIS [None]
  - BACK PAIN [None]
  - EXTRADURAL HAEMATOMA [None]
